APPROVED DRUG PRODUCT: LYMEPAK
Active Ingredient: DOXYCYCLINE HYCLATE
Strength: EQ 100MG BASE
Dosage Form/Route: TABLET;ORAL
Application: N209844 | Product #001
Applicant: CHARTWELL PHARMA NDA B2 HOLDINGS
Approved: Jun 15, 2018 | RLD: Yes | RS: No | Type: DISCN